FAERS Safety Report 4444290-8 (Version None)
Quarter: 2004Q3

REPORT INFORMATION
  Report Type: 
  Country: None (occurrence: None)
  Receive Date: 20040729
  Receipt Date: 20031121
  Transmission Date: 20050211
  Serious: Yes (Other)
  Sender: FDA-Public Use
  Company Number: USA-2003-0010989

PATIENT
  Age: 52 Year
  Sex: Male
  Weight: 62.1 kg

DRUGS (1)
  1. MORPHINE SULFATE [Suspect]

REACTIONS (1)
  - DRUG ABUSER [None]
